FAERS Safety Report 17915263 (Version 2)
Quarter: 2020Q3

REPORT INFORMATION
  Report Type: Report from Study
  Country: US (occurrence: US)
  Receive Date: 20200619
  Receipt Date: 20200728
  Transmission Date: 20201103
  Serious: Yes (Other)
  Sender: FDA-Public Use
  Company Number: US-BEH-2020118708

PATIENT

DRUGS (2)
  1. PROTHROMBIN COMPLEX CONCENTRATE NOS [Suspect]
     Active Substance: COAGULATION FACTOR IX HUMAN\COAGULATION FACTOR VII HUMAN\COAGULATION FACTOR X HUMAN\PROTHROMBIN
     Indication: PROCOAGULANT THERAPY
     Dosage: 17.2 INTERNATIONAL UNIT/KILOGRAM
     Route: 065
  2. PROTHROMBIN COMPLEX CONCENTRATE NOS [Suspect]
     Active Substance: COAGULATION FACTOR IX HUMAN\COAGULATION FACTOR VII HUMAN\COAGULATION FACTOR X HUMAN\PROTHROMBIN
     Indication: SUBARACHNOID HAEMORRHAGE
     Dosage: 27.9 INTERNATIONAL UNIT/KILOGRAM
     Route: 065

REACTIONS (3)
  - Ischaemic stroke [Unknown]
  - No adverse event [Unknown]
  - Product use in unapproved indication [Unknown]
